FAERS Safety Report 13512721 (Version 2)
Quarter: 2017Q2

REPORT INFORMATION
  Report Type: Spontaneous
  Country: US (occurrence: US)
  Receive Date: 20170504
  Receipt Date: 20170613
  Transmission Date: 20170830
  Serious: Yes (Death, Hospitalization)
  Sender: FDA-Public Use
  Company Number: US-BEH-2017079906

PATIENT
  Age: 42 Year
  Sex: Male

DRUGS (1)
  1. HIZENTRA [Suspect]
     Active Substance: HUMAN IMMUNOGLOBULIN G
     Indication: IMMUNODEFICIENCY COMMON VARIABLE
     Dosage: 15 G, UNK
     Route: 058
     Dates: start: 20170221, end: 20170327

REACTIONS (5)
  - Back pain [Unknown]
  - Sepsis [Unknown]
  - Pneumonia [Unknown]
  - Renal failure [Fatal]
  - Renal tubular necrosis [Unknown]

NARRATIVE: CASE EVENT DATE: 20170416
